FAERS Safety Report 19693911 (Version 6)
Quarter: 2021Q4

REPORT INFORMATION
  Report Type: Spontaneous
  Country: US (occurrence: US)
  Receive Date: 20210813
  Receipt Date: 20211125
  Transmission Date: 20220303
  Serious: Yes (Other)
  Sender: FDA-Public Use
  Company Number: US-TERSERA THERAPEUTICS LLC-2021TRS003850

PATIENT

DRUGS (8)
  1. PRIALT [Suspect]
     Active Substance: ZICONOTIDE ACETATE
     Indication: Product used for unknown indication
     Dosage: 1.241 MCG, QD (CONCENTRATION: 6.9 MCG)
     Route: 037
  2. PRIALT [Suspect]
     Active Substance: ZICONOTIDE ACETATE
     Dosage: 2.248 MCG, QD (CONCENTRATION: 12.5 MCG)
     Route: 037
  3. PRIALT [Suspect]
     Active Substance: ZICONOTIDE ACETATE
     Dosage: 1.493 MCG, QD (CONCENTRATION: 8.3 MCG)
     Route: 037
     Dates: end: 20210408
  4. BACLOFEN [Suspect]
     Active Substance: BACLOFEN
     Indication: Product used for unknown indication
     Dosage: 449.736 MCG, QD (CONCENTRATION: 2500 MCG)
     Route: 037
  5. CLONIDINE [Suspect]
     Active Substance: CLONIDINE
     Indication: Product used for unknown indication
     Dosage: 20.148 MCG, QD (CONCENTRATION: 112 MCG)
     Route: 037
  6. CLONIDINE [Suspect]
     Active Substance: CLONIDINE
     Dosage: 29.862 MCG, QD (30MEQ/DL) (CONCENTRATION: 166 MCG)
     Route: 037
  7. CLONIDINE [Suspect]
     Active Substance: CLONIDINE
     Dosage: DECREASE TO15MEQ/DL
     Route: 037
  8. CLONIDINE [Suspect]
     Active Substance: CLONIDINE
     Dosage: INCREASE TO 20MEQ/DL
     Route: 037
     Dates: end: 20210813

REACTIONS (6)
  - Dystonia [Recovered/Resolved]
  - Muscle spasticity [Unknown]
  - Lymphoedema [Unknown]
  - Neuralgia [Unknown]
  - Oedema peripheral [Recovered/Resolved]
  - Off label use [Unknown]

NARRATIVE: CASE EVENT DATE: 20210108
